FAERS Safety Report 7979505-2 (Version None)
Quarter: 2011Q4

REPORT INFORMATION
  Report Type: 
  Country: None (occurrence: None)
  Receive Date: 20111214
  Receipt Date: 20111130
  Transmission Date: 20120403
  Serious: Yes (Other)
  Sender: FDA-Public Use
  Company Number: PHHY2011FI105521

PATIENT
  Age: 46 Year
  Sex: Male

DRUGS (7)
  1. CLOZAPINE [Suspect]
     Dosage: 550 MG / DAY
     Dates: start: 20110101
  2. ABILIFY [Concomitant]
     Dosage: 30 MG, QD
     Dates: start: 20110301
  3. BISOPROLOL FUMARATE [Concomitant]
     Indication: PALPITATIONS
     Dosage: 5 MG, QD
     Dates: start: 20110301
  4. CLOZAPINE [Suspect]
     Dosage: 600 MG/DAY
     Dates: start: 20111001
  5. CLOZAPINE [Suspect]
     Dosage: 750 MG/ DAY
     Dates: start: 20111123
  6. CLOZAPINE [Suspect]
     Indication: SCHIZOPHRENIA
     Dosage: UNK UKN, UNK
     Dates: start: 20101101
  7. ZIPRASIDONE HYDROCHLORIDE [Suspect]
     Dosage: UNK UKN, UNK
     Dates: start: 20110418, end: 20110519

REACTIONS (3)
  - ANTIPSYCHOTIC DRUG LEVEL BELOW THERAPEUTIC [None]
  - PSYCHOTIC BEHAVIOUR [None]
  - ELECTROCARDIOGRAM QT PROLONGED [None]
